FAERS Safety Report 15979946 (Version 1)
Quarter: 2019Q1

REPORT INFORMATION
  Report Type: Spontaneous
  Country: IT (occurrence: IT)
  Receive Date: 20190219
  Receipt Date: 20190219
  Transmission Date: 20190418
  Serious: Yes (Other)
  Sender: FDA-Public Use
  Company Number: IT-ACCORD-107701

PATIENT
  Age: 86 Year
  Sex: Male

DRUGS (7)
  1. LANSOX [Concomitant]
     Active Substance: LANSOPRAZOLE
  2. DEPALGOS [Suspect]
     Active Substance: ACETAMINOPHEN\OXYCODONE HYDROCHLORIDE
     Indication: PAIN
     Route: 048
     Dates: start: 20170101, end: 20171019
  3. EUTIROX [Concomitant]
     Active Substance: LEVOTHYROXINE SODIUM
     Dosage: ALSO RECEIVED AS CONCOMITANT EUTIROX 125 MICROGRAM TABLETS
  4. SERTRALINE [Suspect]
     Active Substance: SERTRALINE HYDROCHLORIDE
     Indication: DEPRESSION
     Dates: end: 20171019
  5. SOLDESAM [Concomitant]
     Active Substance: DEXAMETHASONE
  6. CALCIUM GLUCONATE. [Concomitant]
     Active Substance: CALCIUM GLUCONATE
  7. LYRICA [Concomitant]
     Active Substance: PREGABALIN
     Dosage: ALSO RECEIVED AS CONCOMITANT.

REACTIONS (1)
  - Urinary retention [Recovering/Resolving]

NARRATIVE: CASE EVENT DATE: 20171019
